FAERS Safety Report 7359023-5 (Version None)
Quarter: 2011Q1

REPORT INFORMATION
  Report Type: 
  Country: None (occurrence: None)
  Receive Date: 20110317
  Receipt Date: 20110315
  Transmission Date: 20110831
  Serious: Yes (Death)
  Sender: FDA-Public Use
  Company Number: US-ABBOTT-11P-163-0711531-00

PATIENT
  Sex: Male
  Weight: 83.99 kg

DRUGS (7)
  1. DEPAKOTE ER [Suspect]
     Indication: SCHIZOAFFECTIVE DISORDER
     Dosage: 3 TABS TWICE DAILY
     Dates: start: 20070101, end: 20110311
  2. DEPAKOTE ER [Suspect]
     Indication: ANXIETY DISORDER
  3. DEPAKOTE ER [Suspect]
     Indication: MAJOR DEPRESSION
  4. SEROQUEL [Concomitant]
     Indication: SCHIZOAFFECTIVE DISORDER
     Dosage: AT BEDTIME
  5. ZYPREXA ZYDIS [Concomitant]
     Indication: SCHIZOAFFECTIVE DISORDER
     Dosage: AT BEDTIME
     Route: 048
  6. ZYPREXA ZYDIS [Concomitant]
     Indication: ANXIETY DISORDER
  7. ZYPREXA ZYDIS [Concomitant]
     Indication: MAJOR DEPRESSION

REACTIONS (3)
  - BRAIN NEOPLASM MALIGNANT [None]
  - AMNESIA [None]
  - POST PROCEDURAL COMPLICATION [None]
